FAERS Safety Report 12469517 (Version 7)
Quarter: 2018Q2

REPORT INFORMATION
  Report Type: Report from Study
  Country: CO (occurrence: CO)
  Receive Date: 20160615
  Receipt Date: 20180425
  Transmission Date: 20180711
  Serious: Yes (Other)
  Sender: FDA-Public Use
  Company Number: CO-REGENERON PHARMACEUTICALS, INC.-2016-18258

PATIENT

DRUGS (6)
  1. EYLEA [Suspect]
     Active Substance: AFLIBERCEPT
     Indication: AGE-RELATED MACULAR DEGENERATION
     Dosage: FIRST INJECTION BOTH EYES
     Route: 031
     Dates: start: 20160517, end: 20160517
  2. EYLEA [Suspect]
     Active Substance: AFLIBERCEPT
     Dosage: UNK UNK, Q2MON
     Route: 031
  3. METFORMIN [Concomitant]
     Active Substance: METFORMIN HYDROCHLORIDE
     Indication: TYPE 2 DIABETES MELLITUS
  4. INSULIN [Concomitant]
     Active Substance: INSULIN NOS
     Indication: TYPE 2 DIABETES MELLITUS
  5. EYLEA [Suspect]
     Active Substance: AFLIBERCEPT
     Dosage: SECOND INJECTION BOTH EYES
     Route: 031
     Dates: start: 20170424, end: 20170424
  6. EYLEA [Suspect]
     Active Substance: AFLIBERCEPT
     Dosage: SECOND INJECTION BOTH EYES
     Route: 031
     Dates: start: 20170927, end: 20170927

REACTIONS (5)
  - Retinal haemorrhage [Recovered/Resolved]
  - Intraocular lens implant [Not Recovered/Not Resolved]
  - Inappropriate schedule of drug administration [Not Recovered/Not Resolved]
  - Visual acuity reduced [Recovering/Resolving]
  - Retinal detachment [Unknown]

NARRATIVE: CASE EVENT DATE: 20161215
